FAERS Safety Report 24326095 (Version 1)
Quarter: 2024Q3

REPORT INFORMATION
  Report Type: Spontaneous
  Country: US (occurrence: US)
  Receive Date: 20240917
  Receipt Date: 20240917
  Transmission Date: 20241016
  Serious: Yes (Other)
  Sender: KINIKSA PHARMACEUTICALS
  Company Number: US-Kiniksa Pharmaceuticals Ltd.-2021KPU000267

PATIENT
  Age: 62 Year
  Sex: Female

DRUGS (10)
  1. ARCALYST [Suspect]
     Active Substance: RILONACEPT
     Indication: Pericarditis
     Route: 058
     Dates: start: 20210603
  2. ARCALYST [Suspect]
     Active Substance: RILONACEPT
     Indication: Pericarditis constrictive
     Route: 058
     Dates: start: 20210610
  3. LEVOTHYROXINE [Concomitant]
     Active Substance: LEVOTHYROXINE\LEVOTHYROXINE SODIUM
     Indication: Product used for unknown indication
  4. QUETIAPINE [Concomitant]
     Active Substance: QUETIAPINE
     Indication: Product used for unknown indication
  5. DULOXETINE [Concomitant]
     Active Substance: DULOXETINE
     Indication: Product used for unknown indication
  6. BISOPROLOL [Concomitant]
     Active Substance: BISOPROLOL\BISOPROLOL FUMARATE
     Indication: Product used for unknown indication
  7. PANTOPRAZOLE [Concomitant]
     Active Substance: PANTOPRAZOLE
     Indication: Product used for unknown indication
  8. COLCHICINE [Concomitant]
     Active Substance: COLCHICINE
     Indication: Product used for unknown indication
  9. Allign Probiotic [Concomitant]
     Indication: Product used for unknown indication
  10. RESTASIS [Concomitant]
     Active Substance: CYCLOSPORINE
     Indication: Product used for unknown indication

REACTIONS (12)
  - Eye operation [Unknown]
  - Chest pain [Unknown]
  - Dyspnoea [Unknown]
  - Oxygen saturation abnormal [Unknown]
  - Heart rate increased [Unknown]
  - Pneumonitis [Unknown]
  - Depressed mood [Unknown]
  - Injection site mass [Recovered/Resolved]
  - Injection site erythema [Unknown]
  - Injection site warmth [Unknown]
  - Injection site rash [Unknown]
  - Arthralgia [Unknown]

NARRATIVE: CASE EVENT DATE: 20210612
